FAERS Safety Report 9092610 (Version 1)
Quarter: 2013Q1

REPORT INFORMATION
  Report Type: Report from Study
  Country: US (occurrence: US)
  Receive Date: 20130131
  Receipt Date: 20130131
  Transmission Date: 20140127
  Serious: No
  Sender: FDA-Public Use
  Company Number: US-ABBOTT-12P-163-1003018-00

PATIENT
  Sex: Male
  Weight: 114.86 kg

DRUGS (4)
  1. HUMIRA [Suspect]
     Indication: ARTHRITIS REACTIVE
     Dates: start: 201207
  2. TRUVADA [Concomitant]
     Indication: HIV INFECTION
  3. NORVASC [Concomitant]
     Indication: HYPERTENSION
  4. UNNAMED MEDICATION [Concomitant]
     Indication: HIV INFECTION

REACTIONS (2)
  - Off label use [Not Recovered/Not Resolved]
  - Drug ineffective [Not Recovered/Not Resolved]
